FAERS Safety Report 20600607 (Version 2)
Quarter: 2022Q2

REPORT INFORMATION
  Report Type: Report from Study
  Country: CA (occurrence: CA)
  Receive Date: 20220316
  Receipt Date: 20220610
  Transmission Date: 20220720
  Serious: Yes (Hospitalization, Other)
  Sender: FDA-Public Use
  Company Number: CA-BAUSCH-BL-2019-059617

PATIENT
  Age: 88 Year
  Sex: Male
  Weight: 65.830 kg

DRUGS (6)
  1. SILIQ [Suspect]
     Active Substance: BRODALUMAB
     Indication: Psoriasis
     Dosage: 210 MG/ 1.5 ML, (WEEK 0, 1 AND 2)
     Route: 058
     Dates: start: 20191001, end: 201910
  2. SILIQ [Suspect]
     Active Substance: BRODALUMAB
     Dosage: 210 MG/ 1.5 ML
     Route: 058
     Dates: start: 202011, end: 202011
  3. SILIQ [Suspect]
     Active Substance: BRODALUMAB
     Dosage: 210 MG/ 1.5 ML, STARTED WITH REINDUCTION- WEEK 0,1,2 AND THEN Q 2 WEEKS, DATES UNKNOWN
     Route: 058
     Dates: start: 202101, end: 2021
  4. SILIQ [Suspect]
     Active Substance: BRODALUMAB
     Dosage: 210 MG/ 1.5 ML, Q 2 WEEKS
     Route: 058
  5. PROLIA [Suspect]
     Active Substance: DENOSUMAB
     Indication: Retinal vascular disorder
     Route: 065
  6. LORAZEPAM [Concomitant]
     Active Substance: LORAZEPAM
     Indication: Product used for unknown indication

REACTIONS (23)
  - Oedema peripheral [Recovering/Resolving]
  - Fall [Recovering/Resolving]
  - Bloody discharge [Recovering/Resolving]
  - Retinal vascular disorder [Recovering/Resolving]
  - Facial pain [Not Recovered/Not Resolved]
  - Rhinorrhoea [Recovered/Resolved]
  - Productive cough [Recovered/Resolved]
  - Polyuria [Not Recovered/Not Resolved]
  - Dry skin [Not Recovered/Not Resolved]
  - Abdominal pain upper [Not Recovered/Not Resolved]
  - Hypoaesthesia [Not Recovered/Not Resolved]
  - Musculoskeletal stiffness [Not Recovered/Not Resolved]
  - Lip disorder [Not Recovered/Not Resolved]
  - Muscle spasms [Not Recovered/Not Resolved]
  - Rash pruritic [Unknown]
  - Pain in extremity [Unknown]
  - Pruritus [Unknown]
  - Acne [Unknown]
  - Mobility decreased [Recovering/Resolving]
  - Pigmentation lip [Unknown]
  - Myalgia [Not Recovered/Not Resolved]
  - Skin infection [Recovering/Resolving]
  - Arthralgia [Not Recovered/Not Resolved]

NARRATIVE: CASE EVENT DATE: 20190101
